FAERS Safety Report 10688208 (Version 1)
Quarter: 2015Q1

REPORT INFORMATION
  Report Type: Other
  Country: GB (occurrence: GB)
  Receive Date: 20150102
  Receipt Date: 20150102
  Transmission Date: 20150720
  Serious: Yes (Life-Threatening)
  Sender: FDA-Public Use
  Company Number: GB-PERRIGO-14GB012492

PATIENT
  Age: 5 Year
  Sex: Male
  Weight: 11.7 kg

DRUGS (1)
  1. IBUPROFEN 20 MG/ML 12063/0060 [Suspect]
     Active Substance: IBUPROFEN
     Indication: PRODUCT USED FOR UNKNOWN INDICATION
     Dosage: UNKNOWN, UNKNOWN
     Route: 065
     Dates: start: 20141214

REACTIONS (2)
  - Rash [None]
  - Rash [Unknown]

NARRATIVE: CASE EVENT DATE: 20141214
